FAERS Safety Report 17706668 (Version 1)
Quarter: 2020Q2

REPORT INFORMATION
  Report Type: Spontaneous
  Country: US (occurrence: US)
  Receive Date: 20200424
  Receipt Date: 20200424
  Transmission Date: 20200714
  Serious: No
  Sender: FDA-Public Use
  Company Number: US-ELI_LILLY_AND_COMPANY-US202004006432

PATIENT
  Age: 63 Year
  Sex: Female

DRUGS (4)
  1. BASAGLAR [Suspect]
     Active Substance: INSULIN GLARGINE
     Indication: TYPE 1 DIABETES MELLITUS
     Dosage: 45 U, UNKNOWN
     Route: 058
     Dates: start: 2014
  2. HUMALOG [Suspect]
     Active Substance: INSULIN LISPRO
     Dosage: 90 U, UNKNOWN
     Route: 058
  3. HUMALOG [Suspect]
     Active Substance: INSULIN LISPRO
     Indication: TYPE 1 DIABETES MELLITUS
     Dosage: 90 U, UNKNOWN
     Route: 058
     Dates: start: 2014
  4. BASAGLAR [Suspect]
     Active Substance: INSULIN GLARGINE
     Dosage: 45 U, UNKNOWN
     Route: 058

REACTIONS (6)
  - Oropharyngeal pain [Recovering/Resolving]
  - Hypersensitivity [Recovering/Resolving]
  - Speech disorder [Recovering/Resolving]
  - Eye pruritus [Recovering/Resolving]
  - Rheumatoid arthritis [Not Recovered/Not Resolved]
  - Rhinorrhoea [Recovering/Resolving]

NARRATIVE: CASE EVENT DATE: 20200414
